FAERS Safety Report 9126649 (Version 2)
Quarter: 2013Q1

REPORT INFORMATION
  Report Type: Report from Study
  Country: CA (occurrence: CA)
  Receive Date: 20130228
  Receipt Date: 20130319
  Transmission Date: 20140127
  Serious: Yes (Hospitalization)
  Sender: FDA-Public Use
  Company Number: CA-JNJFOC-20130215697

PATIENT
  Age: 53 Year
  Sex: Male
  Weight: 86.18 kg

DRUGS (12)
  1. REMICADE [Suspect]
     Indication: PSORIATIC ARTHROPATHY
     Route: 042
     Dates: start: 20121030
  2. REMICADE [Suspect]
     Indication: PSORIASIS
     Route: 042
     Dates: start: 20121030
  3. METHOTREXATE [Concomitant]
     Route: 048
  4. PERCOCET [Concomitant]
     Dosage: 2-3 TABS PER DAY (10 MG TABS)
     Route: 065
  5. ADALAT [Concomitant]
     Route: 048
  6. ATACAND [Concomitant]
     Route: 065
  7. INDAPAMIDE [Concomitant]
     Route: 065
  8. METHOTREXATE [Concomitant]
     Route: 065
  9. PREDNISONE [Concomitant]
     Route: 048
     Dates: start: 20120618
  10. INDAPAMIDE [Concomitant]
     Route: 048
  11. CANDESARTAN [Concomitant]
     Route: 048
  12. HYDROXYZINE [Concomitant]
     Route: 048

REACTIONS (1)
  - Colitis [Unknown]
